FAERS Safety Report 8399962 (Version 3)
Quarter: 2014Q1

REPORT INFORMATION
  Report Type: Report from Study
  Country: US (occurrence: US)
  Receive Date: 20120210
  Receipt Date: 20140321
  Transmission Date: 20141002
  Serious: Yes (Hospitalization, Other)
  Sender: FDA-Public Use
  Company Number: US-ALEXION-A201200202

PATIENT
  Age: 47 Year
  Sex: Female

DRUGS (3)
  1. SOLIRIS [Suspect]
     Indication: PAROXYSMAL NOCTURNAL HAEMOGLOBINURIA
     Dosage: 600 MG, Q2W
     Route: 042
     Dates: start: 20111222
  2. SOLIRIS [Suspect]
     Dosage: 900 UNK, UNK
     Route: 042
     Dates: start: 20120119, end: 20120119
  3. PREDNISONE [Concomitant]
     Dosage: 1 MG, QD
     Dates: start: 20120213

REACTIONS (10)
  - Abasia [Recovering/Resolving]
  - Juvenile idiopathic arthritis [Unknown]
  - Neutrophil count decreased [Unknown]
  - Packed red blood cell transfusion [Unknown]
  - Bone pain [Not Recovered/Not Resolved]
  - Asthenia [Recovering/Resolving]
  - Pyrexia [Not Recovered/Not Resolved]
  - Urinary tract infection [Not Recovered/Not Resolved]
  - Weight decreased [Not Recovered/Not Resolved]
  - Decreased appetite [Not Recovered/Not Resolved]
